FAERS Safety Report 10208841 (Version 1)
Quarter: 2014Q2

REPORT INFORMATION
  Report Type: Spontaneous
  Country: US (occurrence: US)
  Receive Date: 20140530
  Receipt Date: 20140530
  Transmission Date: 20141212
  Serious: No
  Sender: FDA-Public Use
  Company Number: US-009507513-1405USA014037

PATIENT
  Age: 21 Year
  Sex: Male

DRUGS (4)
  1. PRINIVIL [Suspect]
     Indication: NEPHROPATHY
     Dosage: 40 MG, QD
     Route: 048
  2. PRINIVIL [Suspect]
     Dosage: 20 MG, QD
     Route: 048
  3. PREDNISONE [Concomitant]
     Indication: FOCAL SEGMENTAL GLOMERULOSCLEROSIS
     Dosage: UNK
     Route: 048
  4. VALSARTAN [Concomitant]
     Indication: NEPHROPATHY
     Dosage: 160 MG, QD

REACTIONS (2)
  - Anaemia [Recovered/Resolved]
  - Dizziness [Unknown]
